FAERS Safety Report 6645196-6 (Version None)
Quarter: 2010Q1

REPORT INFORMATION
  Report Type: 
  Country: None (occurrence: None)
  Receive Date: 20100308
  Receipt Date: 20100301
  Transmission Date: 20100710
  Serious: No
  Sender: FDA-Public Use
  Company Number: 2010-00287

PATIENT
  Age: 64 Year
  Sex: Female
  Weight: 58.514 kg

DRUGS (10)
  1. ZICAM COLD REMEDY ORAL MIST [Suspect]
     Dosage: QID -7 DAYS
     Dates: start: 20100208, end: 20100215
  2. AMITRIPTYLINE HCL [Concomitant]
  3. ATENOLOL [Concomitant]
  4. TRAMADOL HCL [Concomitant]
  5. LASIX [Concomitant]
  6. TEMAZEPAM [Concomitant]
  7. LOVASTATIN [Concomitant]
  8. GABAPENTIN [Concomitant]
  9. AMITIZA [Concomitant]
  10. CHLOR KON [Concomitant]

REACTIONS (1)
  - AGEUSIA [None]
